FAERS Safety Report 6289043-3 (Version None)
Quarter: 2009Q3

REPORT INFORMATION
  Report Type: 
  Country: None (occurrence: None)
  Receive Date: 20090727
  Receipt Date: 20090707
  Transmission Date: 20100115
  Serious: Yes (Hospitalization)
  Sender: FDA-Public Use
  Company Number: ALDI-JP-2009-0008

PATIENT
  Age: 67 Year
  Sex: Female

DRUGS (3)
  1. ALDOMET [Suspect]
     Indication: HYPERTENSION
     Dosage: 250 MG
     Route: 048
     Dates: start: 20090526, end: 20090612
  2. OLMETEC [Concomitant]
  3. ALMARL (AROTINOLOL HYDROCHLORIDE) (AROTINOLOL HYDROCHLORIDE) [Concomitant]

REACTIONS (2)
  - PYREXIA [None]
  - RASH [None]
